FAERS Safety Report 13741241 (Version 2)
Quarter: 2017Q4

REPORT INFORMATION
  Report Type: Report from Study
  Country: US (occurrence: US)
  Receive Date: 20170711
  Receipt Date: 20171010
  Transmission Date: 20180320
  Serious: No
  Sender: FDA-Public Use
  Company Number: US-UCBSA-2017027027

PATIENT
  Age: 21 Year
  Sex: Male

DRUGS (2)
  1. ALBUTOL [Concomitant]
     Active Substance: ALBUTEROL
     Indication: PRODUCT USED FOR UNKNOWN INDICATION
     Dosage: 800 MG 3 TABLETS DAILY
  2. LACOSAMIDE. [Suspect]
     Active Substance: LACOSAMIDE
     Indication: EPILEPSY
     Dosage: 1 DF, 2X/DAY (BID), TABLET
     Dates: start: 20170527

REACTIONS (3)
  - Drug dose omission [Unknown]
  - Seizure [Unknown]
  - Loss of consciousness [Not Recovered/Not Resolved]

NARRATIVE: CASE EVENT DATE: 2017
